FAERS Safety Report 9068962 (Version 1)
Quarter: 2013Q1

REPORT INFORMATION
  Report Type: Spontaneous
  Country: US (occurrence: US)
  Receive Date: 20130128
  Receipt Date: 20130128
  Transmission Date: 20140127
  Serious: Yes (Death)
  Sender: FDA-Public Use
  Company Number: PHHY2013US006751

PATIENT
  Age: 40 Year
  Sex: Female

DRUGS (1)
  1. AMLODIPINE BESILATE,BENAZEPRIL HYDROCHLORIDE [Suspect]
     Dosage: INGESTION

REACTIONS (1)
  - Completed suicide [Fatal]
